FAERS Safety Report 16365022 (Version 1)
Quarter: 2019Q2

REPORT INFORMATION
  Report Type: Spontaneous
  Country: US (occurrence: US)
  Receive Date: 20190529
  Receipt Date: 20190529
  Transmission Date: 20190711
  Serious: Yes (Life-Threatening, Hospitalization, Other)
  Sender: FDA-Public Use
  Company Number: US-HIKMA PHARMACEUTICALS USA INC.-US-H14001-19-03570

PATIENT
  Age: 9 Month
  Sex: Male

DRUGS (2)
  1. FLECAINIDE [Suspect]
     Active Substance: FLECAINIDE
     Dosage: THE PATIENT^S MOTHER ADMINISTERED A DOSE OF 3.75 ML (80 MG) INSTEAD OF THE PRESCRIBED 0.375 ML (7.5
     Route: 065
  2. FLECAINIDE [Suspect]
     Active Substance: FLECAINIDE
     Indication: WOLFF-PARKINSON-WHITE SYNDROME CONGENITAL
     Route: 065

REACTIONS (14)
  - Pleural effusion [Unknown]
  - Cyanosis [Unknown]
  - Accidental overdose [Unknown]
  - Respiratory failure [Unknown]
  - Bradycardia [Recovering/Resolving]
  - Cough [Unknown]
  - Feeding disorder [Unknown]
  - Atrial tachycardia [Recovered/Resolved]
  - Dyspnoea [Unknown]
  - Choking [Unknown]
  - Respiratory tract oedema [Unknown]
  - Slow response to stimuli [Unknown]
  - Toxicity to various agents [Unknown]
  - Product dispensing error [Unknown]
